FAERS Safety Report 8655195 (Version 2)
Quarter: 2012Q4

REPORT INFORMATION
  Report Type: Report from Study
  Country: DE (occurrence: DE)
  Receive Date: 20120709
  Receipt Date: 20121001
  Transmission Date: 20130627
  Serious: Yes (Hospitalization)
  Sender: FDA-Public Use
  Company Number: DE-ABBOTT-12P-062-0951744-00

PATIENT
  Age: 35 Year
  Sex: Female
  Weight: 52 kg

DRUGS (4)
  1. KALETRA [Suspect]
     Indication: HIV INFECTION
     Dosage: 200mg/ 100mg twice a day
     Route: 048
     Dates: start: 20100318
  2. ALCOHOL [Suspect]
     Indication: PRODUCT USED FOR UNKNOWN INDICATION
  3. KIVEXA [Concomitant]
     Indication: PRODUCT USED FOR UNKNOWN INDICATION
     Dosage: 1 Tablet per day NOS
     Route: 048
     Dates: start: 20100402
  4. ISENTRESS [Concomitant]
     Indication: PRODUCT USED FOR UNKNOWN INDICATION
     Dosage: 800 mg /day
     Dates: start: 20110525

REACTIONS (2)
  - Mental disorder [Unknown]
  - Abnormal behaviour [Unknown]
